FAERS Safety Report 15089430 (Version 1)
Quarter: 2018Q2

REPORT INFORMATION
  Report Type: Spontaneous
  Country: JP (occurrence: JP)
  Receive Date: 20180629
  Receipt Date: 20180629
  Transmission Date: 20180711
  Serious: Yes (Other)
  Sender: FDA-Public Use
  Company Number: JP-009507513-1806JPN002933J

PATIENT
  Age: 78 Year
  Sex: Female

DRUGS (1)
  1. TEMODAL [Suspect]
     Active Substance: TEMOZOLOMIDE
     Dosage: 200 MG, UNK
     Route: 048

REACTIONS (3)
  - Somnolence [Unknown]
  - Depressed level of consciousness [Unknown]
  - Fluid intake reduced [Unknown]
